FAERS Safety Report 8863028 (Version 2)
Quarter: 2013Q2

REPORT INFORMATION
  Report Type: Spontaneous
  Country: BR (occurrence: BR)
  Receive Date: 20121026
  Receipt Date: 20130408
  Transmission Date: 20140414
  Serious: Yes (Hospitalization)
  Sender: FDA-Public Use
  Company Number: BR-BRISTOL-MYERS SQUIBB COMPANY-17057720

PATIENT
  Age: 93 Year
  Sex: Male
  Weight: 60 kg

DRUGS (3)
  1. ONGLYZA TABS 2.5 MG [Suspect]
     Indication: TYPE 2 DIABETES MELLITUS
     Dosage: 1TABLET, 2TABS;15OCT12
     Route: 048
     Dates: start: 2012
  2. INSULIN [Concomitant]
  3. PRESSAT [Concomitant]

REACTIONS (4)
  - Cerebrovascular accident [Unknown]
  - Prostatic disorder [Unknown]
  - Blood glucose increased [Unknown]
  - Blood glucose decreased [Unknown]
